FAERS Safety Report 5758592-6 (Version None)
Quarter: 2008Q2

REPORT INFORMATION
  Report Type: 
  Country: None (occurrence: None)
  Receive Date: 20080604
  Receipt Date: 20080529
  Transmission Date: 20081010
  Serious: Yes (Disabling)
  Sender: FDA-Public Use
  Company Number: B0518808A

PATIENT
  Age: 36 Year
  Sex: Female
  Weight: 54 kg

DRUGS (4)
  1. WELLBUTRIN [Suspect]
     Dosage: 150MG PER DAY
     Route: 048
     Dates: start: 20080318, end: 20080322
  2. TRITTICO [Concomitant]
     Indication: DEPRESSION
     Dosage: 50MG PER DAY
     Route: 065
     Dates: start: 20080311, end: 20080313
  3. XANOR [Concomitant]
     Indication: DEPRESSION
     Dosage: .5MG PER DAY
     Route: 065
     Dates: start: 20080311
  4. TRESLEEN [Concomitant]
     Indication: SLEEP DISORDER
     Dosage: 50MG PER DAY
     Route: 065
     Dates: start: 20080313

REACTIONS (2)
  - TINNITUS [None]
  - WHEEZING [None]
